FAERS Safety Report 5017638-3 (Version None)
Quarter: 2006Q2

REPORT INFORMATION
  Report Type: 
  Country: None (occurrence: None)
  Receive Date: 20060605
  Receipt Date: 20041028
  Transmission Date: 20061013
  Serious: Yes (Hospitalization, Disabling)
  Sender: FDA-Public Use
  Company Number: US-ROCHE-384890

PATIENT
  Age: 17 Year
  Sex: Male
  Weight: 65.8 kg

DRUGS (4)
  1. ACCUTANE [Suspect]
     Route: 048
     Dates: start: 19991223, end: 20000715
  2. ACCUTANE [Suspect]
     Route: 048
     Dates: start: 20010815, end: 20011103
  3. SUDAFED [Concomitant]
     Indication: SINUS CONGESTION
     Dates: start: 20011002
  4. IBUPROFEN [Concomitant]
     Indication: HERPANGINA
     Dates: start: 20011103

REACTIONS (39)
  - ABDOMINAL DISCOMFORT [None]
  - ABDOMINAL PAIN [None]
  - ABDOMINAL PAIN UPPER [None]
  - ADJUSTMENT DISORDER [None]
  - ANOREXIA [None]
  - ATTENTION DEFICIT/HYPERACTIVITY DISORDER [None]
  - CARDIAC MURMUR [None]
  - CHEST PAIN [None]
  - CLAVICLE FRACTURE [None]
  - COLITIS [None]
  - COLITIS ULCERATIVE [None]
  - CORNEAL ABRASION [None]
  - DEPRESSION [None]
  - DIARRHOEA [None]
  - DYSTHYMIC DISORDER [None]
  - FEAR [None]
  - GASTROINTESTINAL DISORDER [None]
  - GASTROINTESTINAL INJURY [None]
  - GENERALISED ANXIETY DISORDER [None]
  - HEAD INJURY [None]
  - HEADACHE [None]
  - HERPANGINA [None]
  - INFLAMMATORY BOWEL DISEASE [None]
  - INGROWING NAIL [None]
  - INTESTINAL HAEMORRHAGE [None]
  - JOINT INJURY [None]
  - NASAL CONGESTION [None]
  - NAUSEA [None]
  - PARONYCHIA [None]
  - RECTAL HAEMORRHAGE [None]
  - SCOLIOSIS [None]
  - SINUS CONGESTION [None]
  - SINUSITIS [None]
  - SKIN PAPILLOMA [None]
  - SOCIAL PHOBIA [None]
  - STRESS [None]
  - TENSION [None]
  - THERAPY NON-RESPONDER [None]
  - URINARY TRACT INFECTION [None]
